FAERS Safety Report 5904864-1 (Version None)
Quarter: 2008Q4

REPORT INFORMATION
  Report Type: 
  Country: None (occurrence: None)
  Receive Date: 20081001
  Receipt Date: 20080925
  Transmission Date: 20090506
  Serious: Yes (Hospitalization)
  Sender: FDA-Public Use
  Company Number: A0749233A

PATIENT
  Age: 51 Year
  Sex: Male
  Weight: 80 kg

DRUGS (3)
  1. ARIXTRA [Suspect]
     Indication: DEEP VEIN THROMBOSIS
     Dosage: 7.5MG PER DAY
     Route: 058
     Dates: start: 20080901
  2. ANTIHYPERTENSIVES [Concomitant]
  3. CHEMOTHERAPY [Concomitant]

REACTIONS (2)
  - COAGULOPATHY [None]
  - DRUG INEFFECTIVE [None]
